FAERS Safety Report 7602110-4 (Version None)
Quarter: 2011Q3

REPORT INFORMATION
  Report Type: 
  Country: None (occurrence: None)
  Receive Date: 20110711
  Receipt Date: 20110711
  Transmission Date: 20111222
  Serious: Yes (Other)
  Sender: FDA-Public Use
  Company Number: None

PATIENT
  Age: 43 Year
  Sex: Male
  Weight: 92.986 kg

DRUGS (1)
  1. PROPECIA [Suspect]
     Indication: ALOPECIA
     Dosage: 300
     Dates: start: 19960606, end: 20030903

REACTIONS (3)
  - LOSS OF LIBIDO [None]
  - ERECTILE DYSFUNCTION [None]
  - DIVORCED [None]
